FAERS Safety Report 8451305-9 (Version None)
Quarter: 2012Q2

REPORT INFORMATION
  Report Type: 
  Country: None (occurrence: None)
  Receive Date: 20120620
  Receipt Date: 20120229
  Transmission Date: 20120825
  Serious: No
  Sender: FDA-Public Use
  Company Number: US-VERTEX PHARMACEUTICALS INC.-AE-2012-002516

PATIENT
  Sex: Female
  Weight: 97.61 kg

DRUGS (11)
  1. RIBAVIRIN [Concomitant]
     Indication: HEPATITIS C
     Route: 048
     Dates: start: 20120218
  2. INCIVEK [Suspect]
     Indication: HEPATITIS C
     Route: 048
     Dates: start: 20120218
  3. NIASPAN [Concomitant]
     Indication: BLOOD CHOLESTEROL
     Route: 048
  4. ULORIC [Concomitant]
     Indication: BLOOD URIC ACID INCREASED
     Route: 048
  5. ALLOPURINOL [Concomitant]
     Indication: BLOOD URIC ACID INCREASED
     Route: 048
  6. VENTOLIN [Concomitant]
     Indication: ASTHMA
  7. PEGASYS [Concomitant]
     Indication: HEPATITIS C
     Route: 058
     Dates: start: 20120218
  8. ADVAIR 250/50 DISC [Concomitant]
     Indication: ASTHMA
     Route: 048
  9. PRAVASTATIN [Concomitant]
     Indication: BLOOD CHOLESTEROL
     Route: 048
  10. FLEXERIL [Concomitant]
     Indication: MUSCLE SPASMS
     Route: 048
  11. ASPIRIN [Concomitant]
     Route: 048

REACTIONS (6)
  - ANAL PRURITUS [None]
  - DYSPEPSIA [None]
  - RASH [None]
  - RASH PRURITIC [None]
  - INSOMNIA [None]
  - NAUSEA [None]
